FAERS Safety Report 8830716 (Version 1)
Quarter: 2012Q4

REPORT INFORMATION
  Report Type: 
  Country: US (occurrence: US)
  Receive Date: 20121009
  Receipt Date: 20121009
  Transmission Date: 20130627
  Serious: Yes (Other)
  Sender: FDA-Public Use
  Company Number: US-JNJFOC-20120913205

PATIENT
  Age: 31 None
  Sex: Female
  Weight: 49.44 kg

DRUGS (11)
  1. REMICADE [Suspect]
     Indication: RHEUMATOID ARTHRITIS
     Route: 042
     Dates: start: 201207
  2. REMICADE [Suspect]
     Indication: RHEUMATOID ARTHRITIS
     Route: 042
  3. BENADRYL [Suspect]
     Indication: PRODUCT USED FOR UNKNOWN INDICATION
     Route: 042
  4. STEROIDS NOS [Suspect]
     Indication: PRODUCT USED FOR UNKNOWN INDICATION
     Route: 042
  5. PREDNISONE [Concomitant]
     Indication: RHEUMATOID ARTHRITIS
     Route: 048
     Dates: start: 2012
  6. PREDNISONE [Concomitant]
     Indication: PULMONARY FIBROSIS
     Route: 048
     Dates: start: 2012
  7. LEVOTHYROXINE [Concomitant]
     Indication: THYROID DISORDER
     Route: 048
     Dates: start: 2011
  8. WARFARIN [Concomitant]
     Indication: THROMBOSIS
     Route: 048
     Dates: start: 2012
  9. VICODIN [Concomitant]
     Indication: PAIN
     Dosage: 10.5 (unit unspecified)
     Route: 048
     Dates: start: 201202
  10. VICODIN [Concomitant]
     Indication: PAIN
     Route: 048
     Dates: start: 201202
  11. PERCOCET [Concomitant]
     Indication: PAIN
     Route: 048
     Dates: start: 201209

REACTIONS (13)
  - Chest pain [Recovered/Resolved]
  - Heart rate abnormal [Recovered/Resolved]
  - Deafness [Recovered/Resolved]
  - Headache [Not Recovered/Not Resolved]
  - Local swelling [Recovered/Resolved]
  - Feeling hot [Recovered/Resolved]
  - Dizziness [Recovered/Resolved]
  - Diarrhoea [Not Recovered/Not Resolved]
  - Urticaria [Recovered/Resolved]
  - Therapeutic response decreased [Recovered/Resolved]
  - Night sweats [Unknown]
  - Pyrexia [Unknown]
  - Feeling abnormal [Recovered/Resolved]
